FAERS Safety Report 10517302 (Version 50)
Quarter: 2016Q4

REPORT INFORMATION
  Report Type: Spontaneous
  Country: JP (occurrence: JP)
  Receive Date: 20141014
  Receipt Date: 20161109
  Transmission Date: 20170206
  Serious: Yes (Hospitalization, Other)
  Sender: FDA-Public Use
  Company Number: PHHY2014JP106511

PATIENT
  Age: 42 Year
  Sex: Male

DRUGS (34)
  1. ONBREZ [Interacting]
     Active Substance: INDACATEROL
     Dosage: UNK
     Route: 055
     Dates: start: 20141105
  2. ONBREZ [Interacting]
     Active Substance: INDACATEROL
     Dosage: UNK UNK, BID
     Route: 055
  3. ONBREZ [Interacting]
     Active Substance: INDACATEROL
     Dosage: UNK
     Route: 055
     Dates: start: 20150319
  4. VOLTAREN [Suspect]
     Active Substance: DICLOFENAC SODIUM
     Indication: PROCTALGIA
     Dosage: 25 MG, UNK
     Route: 048
  5. ONBREZ [Interacting]
     Active Substance: INDACATEROL
     Dosage: 150 UG, QD
     Route: 055
  6. VOLTAREN [Suspect]
     Active Substance: DICLOFENAC SODIUM
     Indication: BACK PAIN
     Dosage: UNK
     Route: 048
     Dates: start: 20150622
  7. MUCOSOLVAN [Concomitant]
     Active Substance: AMBROXOL HYDROCHLORIDE
     Indication: PRODUCTIVE COUGH
     Dosage: UNK
     Route: 048
  8. ATORVASTATIN [Concomitant]
     Active Substance: ATORVASTATIN
     Indication: PRODUCT USED FOR UNKNOWN INDICATION
     Dosage: 10 MG, QD
     Route: 048
  9. ONBREZ [Interacting]
     Active Substance: INDACATEROL
     Indication: CHRONIC OBSTRUCTIVE PULMONARY DISEASE
     Dosage: 150 UG, QD
     Route: 055
  10. ONBREZ [Interacting]
     Active Substance: INDACATEROL
     Dosage: UNK
     Route: 055
     Dates: start: 20150316
  11. VOLTAREN [Suspect]
     Active Substance: DICLOFENAC SODIUM
     Indication: PAIN IN EXTREMITY
     Dosage: 25 MG, BID
     Route: 048
  12. ZYLORIC [Concomitant]
     Active Substance: ALLOPURINOL
     Indication: PRODUCT USED FOR UNKNOWN INDICATION
     Dosage: UNK
     Route: 048
  13. NITROGLYCERIN. [Concomitant]
     Active Substance: NITROGLYCERIN
     Indication: ANGINA PECTORIS
     Dosage: UNK
     Route: 065
  14. HYPEN [Concomitant]
     Active Substance: ETODOLAC
     Indication: PRODUCT USED FOR UNKNOWN INDICATION
     Dosage: UNK
     Route: 065
  15. ONBREZ [Suspect]
     Active Substance: INDACATEROL
     Indication: EMPHYSEMA
     Dosage: 450 UG, QD
     Route: 055
     Dates: start: 201402
  16. ONBREZ [Interacting]
     Active Substance: INDACATEROL
     Dosage: UNK
     Route: 055
     Dates: start: 20140918
  17. ONBREZ [Interacting]
     Active Substance: INDACATEROL
     Dosage: UNK
     Route: 055
     Dates: start: 20150209
  18. ONBREZ [Interacting]
     Active Substance: INDACATEROL
     Dosage: UNK
     Route: 055
     Dates: start: 20150313
  19. ONBREZ [Interacting]
     Active Substance: INDACATEROL
     Dosage: UNK OT, BID
     Route: 055
     Dates: start: 20150510
  20. ONBREZ [Interacting]
     Active Substance: INDACATEROL
     Dosage: 150 UG, TID
     Route: 055
     Dates: start: 20150511
  21. ONBREZ [Interacting]
     Active Substance: INDACATEROL
     Dosage: 150 UG, QD
     Route: 055
  22. ONBREZ [Interacting]
     Active Substance: INDACATEROL
     Dosage: UNK UNK, BID
     Route: 055
  23. ALCOHOL. [Interacting]
     Active Substance: ALCOHOL
     Indication: PRODUCT USED FOR UNKNOWN INDICATION
     Dosage: UNK
     Route: 048
  24. NIFEDIPINE. [Concomitant]
     Active Substance: NIFEDIPINE
     Indication: PRODUCT USED FOR UNKNOWN INDICATION
     Dosage: UNK
     Route: 048
  25. ONBREZ [Interacting]
     Active Substance: INDACATEROL
     Dosage: UNK
     Route: 055
     Dates: start: 20150126
  26. ONBREZ [Interacting]
     Active Substance: INDACATEROL
     Dosage: UNK
     Route: 055
     Dates: start: 20150218
  27. ONBREZ [Interacting]
     Active Substance: INDACATEROL
     Dosage: UNK
     Route: 055
     Dates: start: 20141021
  28. ONBREZ [Interacting]
     Active Substance: INDACATEROL
     Dosage: UNK
     Route: 055
     Dates: start: 20141022
  29. ONBREZ [Interacting]
     Active Substance: INDACATEROL
     Dosage: UNK
     Route: 055
     Dates: start: 20150127
  30. ONBREZ [Interacting]
     Active Substance: INDACATEROL
     Dosage: UNK, BID
     Route: 055
     Dates: start: 20150518
  31. TENOMILOL [Concomitant]
     Active Substance: ATENOLOL
     Indication: PRODUCT USED FOR UNKNOWN INDICATION
     Dosage: UNK
     Route: 048
  32. VOLTAREN [Suspect]
     Active Substance: DICLOFENAC SODIUM
     Indication: HEADACHE
     Dosage: 25 MG, QD
     Route: 048
  33. VOLTAREN [Suspect]
     Active Substance: DICLOFENAC SODIUM
     Indication: TEMPOROMANDIBULAR JOINT SYNDROME
  34. LAXATIVE [Concomitant]
     Active Substance: UNSPECIFIED INGREDIENT
     Indication: PRODUCT USED FOR UNKNOWN INDICATION
     Dosage: UNK
     Route: 065

REACTIONS (121)
  - Paralysis [Recovering/Resolving]
  - Aspiration [Unknown]
  - Personality disorder [Unknown]
  - Deafness [Unknown]
  - Back pain [Unknown]
  - Dyspnoea [Recovered/Resolved]
  - Hepatic steatosis [Unknown]
  - Weight increased [Not Recovered/Not Resolved]
  - Urine odour abnormal [Unknown]
  - Productive cough [Unknown]
  - Irritability [Unknown]
  - Diarrhoea [Unknown]
  - Fall [Unknown]
  - Thirst [Unknown]
  - Respiratory rate increased [Unknown]
  - Intercostal neuralgia [Unknown]
  - Alcohol interaction [Unknown]
  - Increased appetite [Unknown]
  - Dyspnoea [Recovering/Resolving]
  - Thinking abnormal [Unknown]
  - Spinal pain [Recovering/Resolving]
  - Joint stiffness [Unknown]
  - Alanine aminotransferase increased [Unknown]
  - Gait disturbance [Unknown]
  - Gamma-glutamyltransferase increased [Recovering/Resolving]
  - Nasal congestion [Recovered/Resolved]
  - Cough [Recovered/Resolved]
  - Nausea [Unknown]
  - Abdominal pain [Recovering/Resolving]
  - Constipation [Unknown]
  - Gastritis [Unknown]
  - Abdominal pain upper [Unknown]
  - Poor quality sleep [Unknown]
  - Head injury [Unknown]
  - Incontinence [Unknown]
  - Muscle twitching [Unknown]
  - Inappropriate schedule of drug administration [Unknown]
  - Malignant melanoma [Unknown]
  - Chronic obstructive pulmonary disease [Unknown]
  - Renal disorder [Unknown]
  - Neck pain [Unknown]
  - Alcohol abuse [Unknown]
  - Cerebrovascular disorder [Unknown]
  - General physical health deterioration [Unknown]
  - Dysarthria [Unknown]
  - Painful respiration [Unknown]
  - Throat irritation [Unknown]
  - Blood pressure increased [Unknown]
  - Myalgia [Unknown]
  - Dry throat [Unknown]
  - Pulmonary pain [Unknown]
  - Flatulence [Unknown]
  - Angina pectoris [Unknown]
  - Cough [Recovered/Resolved]
  - Palpitations [Unknown]
  - Dizziness [Unknown]
  - Muscle spasms [Unknown]
  - Headache [Unknown]
  - Alopecia [Unknown]
  - Heart rate increased [Unknown]
  - Pneumonia aspiration [Unknown]
  - Feeling abnormal [Unknown]
  - Weight decreased [Unknown]
  - Thyroid pain [Unknown]
  - Hunger [Not Recovered/Not Resolved]
  - Pain in extremity [Recovering/Resolving]
  - Lymphocyte percentage decreased [Unknown]
  - Dry mouth [Unknown]
  - Hair colour changes [Unknown]
  - Sleep disorder [Unknown]
  - Pharyngeal erythema [Unknown]
  - Duodenitis [Unknown]
  - Arthropathy [Unknown]
  - Skin exfoliation [Unknown]
  - Hypoaesthesia [Recovering/Resolving]
  - Rhabdomyolysis [Unknown]
  - Chromaturia [Unknown]
  - White blood cell count increased [Unknown]
  - Migraine [Recovered/Resolved]
  - Arthralgia [Unknown]
  - Chills [Unknown]
  - Laryngeal discomfort [Unknown]
  - Pain [Unknown]
  - Sputum increased [Unknown]
  - Anxiety [Unknown]
  - Oropharyngeal pain [Unknown]
  - Rhinorrhoea [Unknown]
  - Overdose [Unknown]
  - Gingival pain [Unknown]
  - Decreased appetite [Unknown]
  - Cough [Unknown]
  - Nocturnal dyspnoea [Unknown]
  - Cardiac disorder [Unknown]
  - Skin discolouration [Unknown]
  - Blood sodium decreased [Unknown]
  - Insomnia [Unknown]
  - Tinnitus [Unknown]
  - Miliaria [Unknown]
  - Pruritus genital [Unknown]
  - Electrolyte imbalance [Unknown]
  - Sensitivity of teeth [Unknown]
  - Toothache [Unknown]
  - Drug effect delayed [Unknown]
  - Drug ineffective [Unknown]
  - Altered state of consciousness [Unknown]
  - Dysphonia [Unknown]
  - Nail discolouration [Unknown]
  - Blood urea decreased [Unknown]
  - Sputum discoloured [Unknown]
  - Musculoskeletal pain [Unknown]
  - Blood glucose increased [Unknown]
  - Pharyngeal disorder [Unknown]
  - Nasopharyngitis [Unknown]
  - Asthenia [Unknown]
  - Tremor [Unknown]
  - Chest pain [Unknown]
  - Headache [Recovered/Resolved]
  - Asthma [Unknown]
  - Platelet count decreased [Unknown]
  - Temporomandibular joint syndrome [Recovering/Resolving]
  - Wrong technique in product usage process [Unknown]

NARRATIVE: CASE EVENT DATE: 20140910
